FAERS Safety Report 12333107 (Version 1)
Quarter: 2016Q2

REPORT INFORMATION
  Report Type: Spontaneous
  Country: US (occurrence: US)
  Receive Date: 20160504
  Receipt Date: 20160504
  Transmission Date: 20160815
  Serious: No
  Sender: FDA-Public Use
  Company Number: US-ROCHE-ITM201502IM009586

PATIENT
  Sex: Male
  Weight: 64.92 kg

DRUGS (3)
  1. ESBRIET [Suspect]
     Active Substance: PIRFENIDONE
     Route: 048
     Dates: start: 20141211
  2. ASPIRIN. [Concomitant]
     Active Substance: ASPIRIN
  3. ESBRIET [Suspect]
     Active Substance: PIRFENIDONE
     Indication: IDIOPATHIC PULMONARY FIBROSIS
     Route: 048
     Dates: start: 20141204

REACTIONS (13)
  - Somnolence [Unknown]
  - Fatigue [Unknown]
  - Drug ineffective [Unknown]
  - Condition aggravated [Unknown]
  - Depression [Unknown]
  - Dysgeusia [Unknown]
  - Dry mouth [Unknown]
  - Glossitis [Unknown]
  - Lethargy [Unknown]
  - Salivary hypersecretion [Unknown]
  - Tongue dry [Unknown]
  - Tic [Unknown]
  - Gingival recession [Unknown]
